FAERS Safety Report 24214117 (Version 2)
Quarter: 2024Q3

REPORT INFORMATION
  Report Type: Spontaneous
  Country: FR (occurrence: FR)
  Receive Date: 20240815
  Receipt Date: 20240915
  Transmission Date: 20241016
  Serious: Yes (Hospitalization, Other)
  Sender: DENTSPLY
  Company Number: FR-DENTSPLY-2024SCDP000233

PATIENT
  Age: 44 Year
  Sex: Female
  Weight: 72 kg

DRUGS (4)
  1. MEPIVACAINE HYDROCHLORIDE [Suspect]
     Active Substance: MEPIVACAINE HYDROCHLORIDE
     Indication: Local anaesthesia
     Dosage: UNK DOSE CARBOCAINE SOLUTION FOR INJECTION (PDF)
     Route: 065
     Dates: start: 20240723
  2. OMEPRAZOLE [Concomitant]
     Active Substance: OMEPRAZOLE
     Indication: Product used for unknown indication
     Dosage: 40 MILLIGRAM
     Route: 042
  3. PERFALGAN [Concomitant]
     Active Substance: ACETAMINOPHEN
     Indication: Pain
     Dosage: 4 GRAM, QD (1 GRAM, 4 DOSE DAILY, ON DEMAND)
     Route: 065
  4. CALCI [CALCITONIN, SALMON] [Concomitant]
     Indication: Product used for unknown indication
     Dosage: 0.25 UNK
     Route: 058

REACTIONS (1)
  - Toxicity to various agents [Unknown]

NARRATIVE: CASE EVENT DATE: 20240723
